FAERS Safety Report 24240656 (Version 1)
Quarter: 2024Q3

REPORT INFORMATION
  Report Type: Spontaneous
  Country: BR (occurrence: BR)
  Receive Date: 20240823
  Receipt Date: 20240823
  Transmission Date: 20241016
  Serious: Yes (Other)
  Sender: CHATTEM
  Company Number: BR-SA-2024SA241485

PATIENT
  Age: 18 Year
  Sex: Female

DRUGS (3)
  1. CORTIZONE 10 EASY RELIEF [Suspect]
     Active Substance: HYDROCORTISONE
     Indication: Intestinal haemorrhage
     Dosage: UNK
     Route: 042
  2. CLOBETASOL PROPIONATE [Suspect]
     Active Substance: CLOBETASOL PROPIONATE
     Indication: Pemphigus
     Dosage: UNK UNK, TID (STRENGTH 0.5 MG/G)
     Route: 061
  3. INFLIXIMAB [Suspect]
     Active Substance: INFLIXIMAB
     Indication: Crohn^s disease
     Dosage: UNK
     Route: 065

REACTIONS (4)
  - Oral herpes [Recovered/Resolved]
  - Mouth ulceration [Recovered/Resolved]
  - Purulent discharge [Recovered/Resolved]
  - Candida infection [Recovered/Resolved]
